FAERS Safety Report 17550159 (Version 3)
Quarter: 2020Q1

REPORT INFORMATION
  Report Type: Spontaneous
  Country: US (occurrence: US)
  Receive Date: 20200317
  Receipt Date: 20200331
  Transmission Date: 20200409
  Serious: Yes (Other)
  Sender: FDA-Public Use
  Company Number: US-PFIZER INC-2020039348

PATIENT
  Age: 56 Year
  Sex: Female
  Weight: 84.37 kg

DRUGS (1)
  1. LYRICA [Suspect]
     Active Substance: PREGABALIN
     Indication: NEUROPATHY PERIPHERAL
     Dosage: 200 MG, 3X/DAY
     Route: 048
     Dates: start: 2017

REACTIONS (9)
  - Muscle spasms [Unknown]
  - Secretion discharge [Unknown]
  - Diabetes mellitus [Not Recovered/Not Resolved]
  - Muscle tightness [Unknown]
  - Atypical pneumonia [Recovered/Resolved]
  - Malaise [Unknown]
  - Spinal disorder [Not Recovered/Not Resolved]
  - Mobility decreased [Unknown]
  - Weight decreased [Unknown]

NARRATIVE: CASE EVENT DATE: 202001
